FAERS Safety Report 24337892 (Version 1)
Quarter: 2024Q3

REPORT INFORMATION
  Report Type: Spontaneous
  Country: TW (occurrence: TW)
  Receive Date: 20240919
  Receipt Date: 20240919
  Transmission Date: 20241016
  Serious: Yes (Death, Hospitalization, Other)
  Sender: UCB
  Company Number: TW-UCBSA-2024047914

PATIENT
  Age: 64 Year
  Sex: Female

DRUGS (14)
  1. LEVETIRACETAM [Suspect]
     Active Substance: LEVETIRACETAM
     Indication: Pyrexia
     Dosage: UNK
  2. LEVETIRACETAM [Suspect]
     Active Substance: LEVETIRACETAM
     Indication: Glioblastoma multiforme
  3. TAZOBACTAM [Suspect]
     Active Substance: TAZOBACTAM
     Indication: Pyrexia
     Dosage: UNK
  4. TAZOBACTAM [Suspect]
     Active Substance: TAZOBACTAM
     Indication: Glioblastoma multiforme
  5. TAZOBACTAM [Suspect]
     Active Substance: TAZOBACTAM
     Indication: White blood cell count decreased
  6. PIPERACILLIN [Suspect]
     Active Substance: PIPERACILLIN
     Indication: White blood cell count decreased
     Dosage: UNK
  7. PIPERACILLIN [Suspect]
     Active Substance: PIPERACILLIN
     Indication: Pyrexia
  8. PIPERACILLIN [Suspect]
     Active Substance: PIPERACILLIN
     Indication: Glioblastoma multiforme
  9. LEVOFLOXACIN [Suspect]
     Active Substance: LEVOFLOXACIN
     Indication: Glioblastoma multiforme
     Dosage: UNK
  10. CHLORZOXAZONE [Suspect]
     Active Substance: CHLORZOXAZONE
     Indication: Glioblastoma multiforme
     Dosage: UNK
  11. FAMOTIDINE [Suspect]
     Active Substance: FAMOTIDINE
     Indication: Glioblastoma multiforme
     Dosage: UNK
  12. FLUCONAZOLE [Concomitant]
     Active Substance: FLUCONAZOLE
     Indication: Product used for unknown indication
     Dosage: UNK
  13. CELECOXIB [Concomitant]
     Active Substance: CELECOXIB
     Indication: Product used for unknown indication
     Dosage: UNK
  14. ACYCLOVIR [Concomitant]
     Active Substance: ACYCLOVIR
     Indication: Product used for unknown indication
     Dosage: UNK

REACTIONS (8)
  - Pneumonia [Fatal]
  - Sepsis [Fatal]
  - Urinary tract infection [Fatal]
  - Condition aggravated [Fatal]
  - Glioblastoma multiforme [Fatal]
  - Toxic epidermal necrolysis [Unknown]
  - Stevens-Johnson syndrome [Unknown]
  - Product use in unapproved indication [Unknown]
